FAERS Safety Report 14801008 (Version 1)
Quarter: 2018Q2

REPORT INFORMATION
  Report Type: Spontaneous
  Country: DE (occurrence: DE)
  Receive Date: 20180424
  Receipt Date: 20180424
  Transmission Date: 20180711
  Serious: Yes (Congenital Anomaly)
  Sender: FDA-Public Use
  Company Number: PHHY2018DE070845

PATIENT
  Age: 1 Day
  Sex: Male
  Weight: 2.15 kg

DRUGS (10)
  1. LEVODOPA BENSERAZID BETA [Suspect]
     Active Substance: BENSERAZIDE HYDROCHLORIDE\LEVODOPA
     Dosage: MATERNAL DOSE: 37.5 MG, QD
     Route: 064
     Dates: start: 20170220
  2. SIFROL [Suspect]
     Active Substance: PRAMIPEXOLE
     Dosage: MATERNAL DOSE: 1.05 MG, QD
     Route: 064
     Dates: start: 20160811
  3. METOHEXAL [Concomitant]
     Active Substance: METOPROLOL SUCCINATE
     Indication: FOETAL EXPOSURE DURING PREGNANCY
     Dosage: MATERNAL DOSE: 47.5 MG, QD
     Route: 064
  4. RASAGILINE. [Suspect]
     Active Substance: RASAGILINE
     Indication: FOETAL EXPOSURE DURING PREGNANCY
     Dosage: MATERNAL DOSE: 1 MG, QD
     Route: 064
     Dates: start: 20160612
  5. AMANTADINE. [Suspect]
     Active Substance: AMANTADINE HYDROCHLORIDE
     Dosage: MATERNAL DOSE: 200 MG, QD
     Route: 064
     Dates: start: 20160811
  6. AMANTADINE. [Suspect]
     Active Substance: AMANTADINE HYDROCHLORIDE
     Indication: FOETAL EXPOSURE DURING PREGNANCY
     Dosage: MATERNAL DOSE: 200 MG, QD
     Route: 064
     Dates: start: 20160612
  7. SIFROL [Suspect]
     Active Substance: PRAMIPEXOLE
     Indication: FOETAL EXPOSURE DURING PREGNANCY
     Dosage: MATERNAL DOSE: 1.05 MG, QD
     Route: 064
     Dates: start: 20160612
  8. RASAGILINE. [Suspect]
     Active Substance: RASAGILINE
     Dosage: MATERNAL DOSE: 1 MG, QD
     Route: 064
     Dates: start: 20160811
  9. LEVODOPA BENSERAZID BETA [Suspect]
     Active Substance: BENSERAZIDE HYDROCHLORIDE\LEVODOPA
     Indication: FOETAL EXPOSURE DURING PREGNANCY
     Dosage: MATERNAL DOSE: 37.5 MG, QD
     Route: 064
     Dates: start: 20160812
  10. FOLSAEURE [Concomitant]
     Active Substance: FOLIC ACID
     Indication: FOETAL EXPOSURE DURING PREGNANCY
     Dosage: MATERNAL DOSE: UNK
     Route: 064

REACTIONS (1)
  - Atrial septal defect [Unknown]

NARRATIVE: CASE EVENT DATE: 20170220
